FAERS Safety Report 5661861-1 (Version None)
Quarter: 2008Q1

REPORT INFORMATION
  Report Type: 
  Country: None (occurrence: None)
  Receive Date: 20080306
  Receipt Date: 20080221
  Transmission Date: 20080703
  Serious: Yes (Hospitalization)
  Sender: FDA-Public Use
  Company Number: 2008RR-13240

PATIENT
  Age: 67 Year
  Sex: Female

DRUGS (12)
  1. CEPHALEXIN [Suspect]
     Indication: URINARY TRACT INFECTION
     Dosage: 500 MG, TID, ORAL
     Route: 048
     Dates: start: 20080108, end: 20080112
  2. IKOREL (NICORANDIL) [Suspect]
     Indication: ANGINA PECTORIS
     Dosage: 10 MG, BID, ORAL
     Route: 048
     Dates: end: 20080116
  3. ARTHROTEC [Concomitant]
  4. ASPIRIN [Concomitant]
  5. DESLORATADINE (DESLORATADINE) [Concomitant]
  6. DIORALYTE (DISODIUM HYDROGEN CITRATE, GLUCOSE, POTASSIUM CHLORIDE, SOD [Concomitant]
  7. DOMPERIDONE 10MG TABLETS (DOMPERIDONE) UNKNOWN [Concomitant]
  8. FERROUS SULPHATE 200MG TABLETS (IRON) UNKNOWN [Concomitant]
  9. GLYCERYL TRINITRATE (GLYCERYL TRINITRATE) [Concomitant]
  10. LOPERAMIDE [Concomitant]
  11. SIMVASTATIN [Concomitant]
  12. TRAMADOL HYDROCHLORIDE CAPSULES 50MG (TRAMADOL) UNKNOWN [Concomitant]

REACTIONS (4)
  - GASTRITIS [None]
  - OESOPHAGEAL ULCER [None]
  - PHARYNGOLARYNGEAL PAIN [None]
  - TONGUE ULCERATION [None]
